FAERS Safety Report 21555602 (Version 1)
Quarter: 2022Q4

REPORT INFORMATION
  Report Type: Spontaneous
  Country: FR (occurrence: FR)
  Receive Date: 20221104
  Receipt Date: 20221104
  Transmission Date: 20230113
  Serious: Yes (Hospitalization)
  Sender: FDA-Public Use
  Company Number: None

PATIENT
  Age: 20 Year
  Sex: Female
  Weight: 54 kg

DRUGS (4)
  1. RAMIPRIL [Suspect]
     Active Substance: RAMIPRIL
     Indication: Intentional overdose
     Dosage: DURATION : 1 DAY
     Dates: start: 20220103, end: 20220103
  2. CONCERTA [Suspect]
     Active Substance: METHYLPHENIDATE HYDROCHLORIDE
     Indication: Intentional overdose
     Dosage: DURATION : 1 DAY
     Dates: start: 20220103, end: 20220103
  3. AMLODIPINE BESYLATE [Suspect]
     Active Substance: AMLODIPINE BESYLATE
     Indication: Intentional overdose
     Dosage: DURATION : 1 DAY
     Dates: start: 20220103, end: 20220103
  4. ASPIRIN [Suspect]
     Active Substance: ASPIRIN
     Indication: Intentional overdose
     Dosage: DURATION : 1 DAY
     Dates: start: 20220103, end: 20220103

REACTIONS (2)
  - Intentional overdose [Recovered/Resolved]
  - Hypotension [Recovered/Resolved]

NARRATIVE: CASE EVENT DATE: 20220103
